FAERS Safety Report 14343408 (Version 1)
Quarter: 2018Q1

REPORT INFORMATION
  Report Type: Spontaneous
  Country: US (occurrence: US)
  Receive Date: 20180101
  Receipt Date: 20180101
  Transmission Date: 20180509
  Serious: Yes (Other)
  Sender: FDA-Public Use
  Company Number: None

PATIENT
  Sex: Female
  Weight: 90 kg

DRUGS (4)
  1. ZETIA [Suspect]
     Active Substance: EZETIMIBE
     Indication: BLOOD CHOLESTEROL INCREASED
     Dates: start: 20161101, end: 20170506
  2. WARFARIN [Concomitant]
     Active Substance: WARFARIN
  3. GABAPENTIN. [Concomitant]
     Active Substance: GABAPENTIN
  4. ATENOL [Concomitant]
     Active Substance: ATENOLOL

REACTIONS (1)
  - Blood glucose decreased [None]

NARRATIVE: CASE EVENT DATE: 20170501
